FAERS Safety Report 6675927-0 (Version None)
Quarter: 2010Q2

REPORT INFORMATION
  Report Type: 
  Country: None (occurrence: None)
  Receive Date: 20100412
  Receipt Date: 20100401
  Transmission Date: 20101027
  Serious: No
  Sender: FDA-Public Use
  Company Number: US-BIOGENIDEC-2010BI011265

PATIENT
  Sex: Female

DRUGS (1)
  1. TYSABRI [Suspect]
     Indication: MULTIPLE SCLEROSIS
     Route: 042
     Dates: start: 20080401

REACTIONS (4)
  - ANXIETY [None]
  - COGNITIVE DISORDER [None]
  - DIZZINESS [None]
  - TEMPERATURE INTOLERANCE [None]
